FAERS Safety Report 15624840 (Version 1)
Quarter: 2018Q4

REPORT INFORMATION
  Report Type: Spontaneous
  Country: US (occurrence: US)
  Receive Date: 20181116
  Receipt Date: 20181116
  Transmission Date: 20190205
  Serious: Yes (Other)
  Sender: FDA-Public Use
  Company Number: US-AMGEN-USASP2018161425

PATIENT
  Age: 33 Year
  Sex: Female

DRUGS (2)
  1. CORLANOR [Suspect]
     Active Substance: IVABRADINE HYDROCHLORIDE
     Dosage: 5 MG, QD
     Route: 065
     Dates: start: 20181102
  2. CORLANOR [Suspect]
     Active Substance: IVABRADINE HYDROCHLORIDE
     Indication: SINUS TACHYCARDIA
     Dosage: 2.5 MG, QD
     Route: 065
     Dates: start: 20181006

REACTIONS (4)
  - Dizziness [Recovered/Resolved]
  - Tunnel vision [Recovered/Resolved]
  - Off label use [Unknown]
  - Oral herpes [Unknown]

NARRATIVE: CASE EVENT DATE: 2018
